FAERS Safety Report 9820727 (Version 1)
Quarter: 2014Q1

REPORT INFORMATION
  Report Type: Spontaneous
  Country: US (occurrence: None)
  Receive Date: 20140114
  Receipt Date: 20140114
  Transmission Date: 20141002
  Serious: Yes (Other)
  Sender: FDA-Public Use
  Company Number: None

PATIENT
  Age: 37 Year
  Sex: Female
  Weight: 92.99 kg

DRUGS (1)
  1. ZOFRAN [Suspect]
     Indication: HYPEREMESIS GRAVIDARUM
     Dosage: 1 PILL AS NEEDED TAKEN UNDER THE TONGUE
     Dates: start: 20130829, end: 20131120

REACTIONS (3)
  - Heart rate increased [None]
  - Foetal arrhythmia [None]
  - Maternal drugs affecting foetus [None]
